FAERS Safety Report 26109822 (Version 1)
Quarter: 2025Q4

REPORT INFORMATION
  Report Type: Spontaneous
  Country: MX (occurrence: MX)
  Receive Date: 20251201
  Receipt Date: 20251201
  Transmission Date: 20260118
  Serious: Yes (Other)
  Sender: NOVO NORDISK
  Company Number: MX-NOVOPROD-1571698

PATIENT
  Age: 47 Year
  Sex: Female
  Weight: 91 kg

DRUGS (1)
  1. WEGOVY [Suspect]
     Active Substance: SEMAGLUTIDE
     Indication: Weight control
     Dosage: 0.25 MG, QW
     Route: 058
     Dates: start: 20251012, end: 20251108

REACTIONS (9)
  - Gastrointestinal inflammation [Unknown]
  - Colitis [Unknown]
  - Dyspepsia [Unknown]
  - Gastritis [Unknown]
  - Diarrhoea [Unknown]
  - Malaise [Unknown]
  - Liver disorder [Unknown]
  - Pancreatic disorder [Unknown]
  - Wrong technique in product usage process [Recovered/Resolved]

NARRATIVE: CASE EVENT DATE: 20251012
